FAERS Safety Report 7910668-0 (Version None)
Quarter: 2011Q4

REPORT INFORMATION
  Report Type: 
  Country: None (occurrence: None)
  Receive Date: 20111111
  Receipt Date: 20111107
  Transmission Date: 20120403
  Serious: Yes (Life-Threatening, Hospitalization, Disabling)
  Sender: FDA-Public Use
  Company Number: CA-ASTRAZENECA-2011SE67181

PATIENT
  Age: 55 Year
  Sex: Female
  Weight: 47.6 kg

DRUGS (3)
  1. SEROQUEL [Suspect]
     Route: 048
  2. ZYPREXA [Concomitant]
     Route: 065
  3. TRAZODONE HCL [Concomitant]
     Route: 065

REACTIONS (8)
  - FEELING ABNORMAL [None]
  - WEIGHT INCREASED [None]
  - SUICIDAL IDEATION [None]
  - BLISTER [None]
  - CONDITION AGGRAVATED [None]
  - CONSTIPATION [None]
  - WITHDRAWAL SYNDROME [None]
  - PAIN [None]
